FAERS Safety Report 8772774 (Version 1)
Quarter: 2012Q4

REPORT INFORMATION
  Report Type: 
  Country: FR (occurrence: FR)
  Receive Date: 20120907
  Receipt Date: 20120907
  Transmission Date: 20130627
  Serious: Yes (Disabling, Other)
  Sender: FDA-Public Use
  Company Number: FR-PFIZER INC-2012218737

PATIENT
  Age: 71 Year
  Sex: Female

DRUGS (8)
  1. CORDARONE [Suspect]
     Dosage: 200 mg, daily
     Route: 048
  2. INTELENCE [Interacting]
     Indication: HIV INFECTION
     Dosage: 2 DF, 2x/day
     Route: 048
  3. FUZEON [Concomitant]
     Dosage: UNK
  4. ISENTRESS [Concomitant]
     Dosage: UNK
  5. DIAMICRON [Concomitant]
     Dosage: UNK
  6. GLUCOPHAGE [Concomitant]
     Dosage: UNK
  7. COVERSYL [Concomitant]
     Dosage: UNK
  8. LOXEN [Concomitant]
     Dosage: UNK

REACTIONS (4)
  - Drug interaction [Unknown]
  - Neuropathy peripheral [Not Recovered/Not Resolved]
  - Hypothyroidism [Unknown]
  - Iron deficiency anaemia [Unknown]
